FAERS Safety Report 6870873-1 (Version None)
Quarter: 2010Q3

REPORT INFORMATION
  Report Type: 
  Country: None (occurrence: None)
  Receive Date: 20100723
  Receipt Date: 20100709
  Transmission Date: 20110219
  Serious: Yes (Other)
  Sender: FDA-Public Use
  Company Number: PHHY2010JP43127

PATIENT
  Age: 50 Year
  Sex: Female

DRUGS (6)
  1. AREDIA [Suspect]
     Indication: METASTASES TO BONE
     Dosage: UNK
     Route: 065
     Dates: start: 20030101, end: 20040101
  2. ZOMETA [Suspect]
     Indication: METASTASES TO BONE
     Dosage: UNK
     Route: 065
     Dates: start: 20040101, end: 20090201
  3. CHEMOTHERAPEUTICS NOS [Concomitant]
  4. HORMONES [Concomitant]
  5. RADIOTHERAPY [Concomitant]
     Dosage: 50 GY /25 FRACTIONS
  6. ANTIBACTERIALS [Concomitant]

REACTIONS (13)
  - BONE DISORDER [None]
  - GINGIVAL BLEEDING [None]
  - GINGIVECTOMY [None]
  - GINGIVITIS [None]
  - MALIGNANT NEOPLASM PROGRESSION [None]
  - METASTASES TO BONE [None]
  - METASTASES TO LIVER [None]
  - METASTASES TO LUNG [None]
  - OSTEONECROSIS OF JAW [None]
  - OSTEOSCLEROSIS [None]
  - PERFORMANCE STATUS DECREASED [None]
  - SECONDARY SEQUESTRUM [None]
  - TOOTH EXTRACTION [None]
